FAERS Safety Report 4439232-5 (Version None)
Quarter: 2004Q3

REPORT INFORMATION
  Report Type: 
  Country: None (occurrence: None)
  Receive Date: 20040831
  Receipt Date: 20040820
  Transmission Date: 20050211
  Serious: Yes (Other)
  Sender: FDA-Public Use
  Company Number: 2004229765US

PATIENT
  Age: 15 Year
  Sex: Male
  Weight: 33.4 kg

DRUGS (4)
  1. GENOTROPIN [Suspect]
     Indication: HYPOPITUITARISM
     Dosage: 2 MG, QD, SUBCUTANEOUS
     Route: 058
     Dates: start: 20031230, end: 20040717
  2. LEVOXYL [Concomitant]
  3. DDAVP [Concomitant]
  4. CORTEF [Concomitant]

REACTIONS (3)
  - GLIOMA [None]
  - HEADACHE [None]
  - NEOPLASM RECURRENCE [None]
